FAERS Safety Report 4650498-9 (Version None)
Quarter: 2005Q2

REPORT INFORMATION
  Report Type: 
  Country: None (occurrence: None)
  Receive Date: 20050429
  Receipt Date: 20050418
  Transmission Date: 20051028
  Serious: Yes (Life-Threatening, Hospitalization, Other)
  Sender: FDA-Public Use
  Company Number: 2005030558

PATIENT
  Age: 74 Year
  Sex: Male
  Weight: 92 kg

DRUGS (15)
  1. BEXTRA [Suspect]
     Indication: ILL-DEFINED DISORDER
     Dosage: (40 MG), ORAL
     Route: 048
     Dates: start: 20050126, end: 20050127
  2. CEPHALOSPORINS AND RELATED SUBSTANCE (CEPHALOSPORINS AND RELATED SUBST [Concomitant]
  3. CLAVULIN (AMOXICILLIN TRIHYDRATE, CLAVULANATE POTASSIUM) [Concomitant]
  4. HYDROCORTISONE [Concomitant]
  5. ANTIHISTAMINES (ANTIHISTAMINES) [Concomitant]
  6. CIPROFLOXACIN [Concomitant]
  7. BUPIVACIANE (BUPIVACAINE) [Concomitant]
  8. FENTANYL [Concomitant]
  9. MIDAZOLAM HCL [Concomitant]
  10. GENTAMICIN [Concomitant]
  11. FUROSEMIDE [Concomitant]
  12. LORMETAZEPAM (LORMETAZEPAM) [Concomitant]
  13. ACETAMINOPHEN [Concomitant]
  14. COLOXYL WITH SENNA (DOCUSATE SODIUM, SENNOSIDE A+B) [Concomitant]
  15. LORMETAZEPAM (LORMETAZEPAM) [Concomitant]

REACTIONS (16)
  - ANURIA [None]
  - CONFUSIONAL STATE [None]
  - ERYTHEMA MULTIFORME [None]
  - HAEMODIALYSIS [None]
  - HYPOTENSION [None]
  - MALAISE [None]
  - METABOLIC ACIDOSIS [None]
  - MOUTH ULCERATION [None]
  - RASH PRURITIC [None]
  - SEPSIS [None]
  - STEVENS-JOHNSON SYNDROME [None]
  - SWOLLEN TONGUE [None]
  - TACHYCARDIA [None]
  - URINE OUTPUT DECREASED [None]
  - VOMITING [None]
  - WHEEZING [None]
